FAERS Safety Report 6956818-4 (Version None)
Quarter: 2010Q3

REPORT INFORMATION
  Report Type: 
  Country: None (occurrence: None)
  Receive Date: 20100830
  Receipt Date: 20100820
  Transmission Date: 20110219
  Serious: Yes (Hospitalization)
  Sender: FDA-Public Use
  Company Number: CN-ABBOTT-10P-035-0665288-00

PATIENT
  Age: 83 Year
  Sex: Female

DRUGS (2)
  1. FENOFIBRATE [Suspect]
     Indication: HYPERLIPIDAEMIA
     Route: 048
     Dates: start: 20080101, end: 20100801
  2. MELOXICAM [Concomitant]
     Indication: ARTHRALGIA
     Route: 048
     Dates: start: 20100101, end: 20100801

REACTIONS (5)
  - BLOOD CREATININE INCREASED [None]
  - GASTROINTESTINAL HAEMORRHAGE [None]
  - LIVER DISORDER [None]
  - PAIN IN EXTREMITY [None]
  - RHABDOMYOLYSIS [None]
